FAERS Safety Report 8595548-2 (Version None)
Quarter: 2012Q3

REPORT INFORMATION
  Report Type: 
  Country: None (occurrence: None)
  Receive Date: 20120815
  Receipt Date: 20120808
  Transmission Date: 20120928
  Serious: Yes (Other)
  Sender: FDA-Public Use
  Company Number: US-US-EMD SERONO, INC.-7153693

PATIENT
  Sex: Male

DRUGS (1)
  1. REBIF [Suspect]
     Indication: PRODUCT USED FOR UNKNOWN INDICATION
     Dates: start: 20120409, end: 20120701

REACTIONS (5)
  - MYOCARDIAL INFARCTION [None]
  - CHEST PAIN [None]
  - OEDEMA PERIPHERAL [None]
  - HYPERTENSION [None]
  - VOMITING [None]
